FAERS Safety Report 7605236-4 (Version None)
Quarter: 2011Q3

REPORT INFORMATION
  Report Type: 
  Country: None (occurrence: None)
  Receive Date: 20110713
  Receipt Date: 20110629
  Transmission Date: 20111222
  Serious: Yes (Other)
  Sender: FDA-Public Use
  Company Number: US-RANBAXY-2011RR-45429

PATIENT
  Sex: Female

DRUGS (29)
  1. AMBIEN [Concomitant]
     Indication: PRODUCT USED FOR UNKNOWN INDICATION
     Dosage: 5 MG, PRN
     Route: 048
     Dates: start: 20100416
  2. ARFORMOTEROL TARTRATE [Concomitant]
     Indication: PRODUCT USED FOR UNKNOWN INDICATION
     Dosage: 15 UG, BID
     Route: 055
     Dates: start: 20100424
  3. CIPROFLOXACIN [Suspect]
     Indication: INFECTION
     Dosage: UNK
     Dates: start: 20090201
  4. LEVAQUIN [Suspect]
     Indication: CHRONIC OBSTRUCTIVE PULMONARY DISEASE
     Dosage: UNK
     Route: 048
     Dates: start: 20100416, end: 20100423
  5. PULMICORT [Concomitant]
     Indication: PRODUCT USED FOR UNKNOWN INDICATION
     Dosage: 0.5 MG, BID
     Route: 055
     Dates: start: 20100424
  6. PROTONIX [Concomitant]
     Indication: PRODUCT USED FOR UNKNOWN INDICATION
     Dosage: 40 MG, UNK
     Route: 048
     Dates: start: 20100416
  7. ALBUTEROL SULPHATE [Concomitant]
     Dosage: 2.5 MG, Q2H
     Route: 055
     Dates: start: 20100416
  8. SOLU-MEDROL [Suspect]
     Dosage: 30 MG, QID
     Dates: start: 20100417
  9. SOLU-MEDROL [Suspect]
     Dosage: 40 MG, BID
     Dates: start: 20100423
  10. MUCINEX [Concomitant]
     Indication: PRODUCT USED FOR UNKNOWN INDICATION
     Dosage: 1200 MG, BID
     Route: 048
     Dates: start: 20100420
  11. SOLU-MEDROL [Suspect]
     Indication: PRODUCT USED FOR UNKNOWN INDICATION
     Dosage: 60 MG, QID
     Dates: start: 20100416
  12. SOLU-MEDROL [Suspect]
     Dosage: 4 MG, UNK
     Dates: start: 20091230
  13. DETROL LA [Concomitant]
     Indication: PRODUCT USED FOR UNKNOWN INDICATION
     Dosage: 4 MG, UNK
     Route: 048
     Dates: start: 20100416
  14. XOPENEX [Concomitant]
     Indication: PRODUCT USED FOR UNKNOWN INDICATION
     Dosage: 0.63 MG, QID
     Route: 055
     Dates: start: 20100419
  15. NOVOLOG [Concomitant]
     Indication: PRODUCT USED FOR UNKNOWN INDICATION
     Dosage: UNK
     Route: 058
     Dates: start: 20100419
  16. FORADIL [Concomitant]
     Indication: PRODUCT USED FOR UNKNOWN INDICATION
     Dosage: 12 UG, BID
     Route: 055
     Dates: start: 20100416
  17. CALCIUM CARBONATE [Concomitant]
     Indication: PRODUCT USED FOR UNKNOWN INDICATION
     Dosage: 1 DF, BID
     Route: 048
     Dates: start: 20100416
  18. LOVENOX [Concomitant]
     Indication: PRODUCT USED FOR UNKNOWN INDICATION
     Dosage: 40 MG, UNK
     Route: 058
     Dates: start: 20100416
  19. SPIRIVA [Concomitant]
     Indication: PRODUCT USED FOR UNKNOWN INDICATION
     Dosage: 18 UG, UNK
     Route: 055
     Dates: start: 20100416
  20. MYCOSTATIN [Concomitant]
     Indication: PRODUCT USED FOR UNKNOWN INDICATION
     Dosage: 10 ML, QID
     Route: 048
     Dates: start: 20100423
  21. PREDNISOLONE [Suspect]
     Indication: CHRONIC OBSTRUCTIVE PULMONARY DISEASE
     Dosage: 20 MG, UNK
     Route: 048
     Dates: start: 20080101
  22. CIPROFLOXACIN [Suspect]
     Dosage: UNK
     Dates: start: 20090501
  23. SOLU-MEDROL [Suspect]
     Dosage: 60 MG, TID
     Dates: start: 20100421
  24. AMOXICILLIN [Concomitant]
     Indication: BRONCHITIS
     Dosage: UNK
     Dates: start: 20100401
  25. FLOVENT [Concomitant]
     Indication: PRODUCT USED FOR UNKNOWN INDICATION
     Dosage: UNK
     Route: 055
     Dates: start: 20100416
  26. ALBUTEROL SULPHATE [Concomitant]
     Indication: PRODUCT USED FOR UNKNOWN INDICATION
     Dosage: 2.5 MG, Q4H
     Route: 055
     Dates: start: 20100416
  27. DILANTIN [Concomitant]
     Indication: PRODUCT USED FOR UNKNOWN INDICATION
     Dosage: 100 MG, BID
     Route: 048
     Dates: start: 20100416
  28. TYLENOL-500 [Concomitant]
     Indication: PRODUCT USED FOR UNKNOWN INDICATION
     Dosage: 650 MG, TID
     Route: 048
     Dates: start: 20100421
  29. ATIVAN [Concomitant]
     Indication: PRODUCT USED FOR UNKNOWN INDICATION
     Dosage: 0.5 MG, QID
     Route: 048
     Dates: start: 20100416

REACTIONS (2)
  - PLANTAR FASCIITIS [None]
  - TENDON RUPTURE [None]
